FAERS Safety Report 19173906 (Version 1)
Quarter: 2021Q2

REPORT INFORMATION
  Report Type: Spontaneous
  Country: US (occurrence: US)
  Receive Date: 20210423
  Receipt Date: 20210423
  Transmission Date: 20210717
  Serious: Yes (Hospitalization, Other)
  Sender: FDA-Public Use
  Company Number: US-FRESENIUS KABI-FK202104066

PATIENT
  Age: 24 Month
  Sex: Male

DRUGS (16)
  1. MESNA. [Suspect]
     Active Substance: MESNA
     Indication: NEUROBLASTOMA
     Dosage: INDUCTION CYCLE 4
     Route: 065
  2. SARGRAMOSTIM [Suspect]
     Active Substance: SARGRAMOSTIM
     Dosage: INDUCTION CYCLE 5
     Route: 065
  3. CISPLATIN (MANUFACTURER UNKNOWN) [Suspect]
     Active Substance: CISPLATIN
     Indication: NEUROBLASTOMA
     Dosage: INDUCTION CYCLE 5
     Route: 065
  4. DINUTUXIMAB [Suspect]
     Active Substance: DINUTUXIMAB
     Indication: NEUROBLASTOMA
     Dosage: UNITUXIN IV INFUSION, 3.5 MG/ML
     Route: 041
  5. DOXORUBICIN HYDROCHLORIDE. [Suspect]
     Active Substance: DOXORUBICIN HYDROCHLORIDE
     Route: 065
  6. CYCLOPHOSPHAMIDE. [Suspect]
     Active Substance: CYCLOPHOSPHAMIDE
     Indication: NEUROBLASTOMA
     Dosage: INDUCTION CYCLE 4
     Route: 065
  7. DEXRAZOXANE. [Suspect]
     Active Substance: DEXRAZOXANE
     Indication: NEUROBLASTOMA
     Dosage: INDUCTION CYCLE 4
     Route: 065
  8. SARGRAMOSTIM [Suspect]
     Active Substance: SARGRAMOSTIM
     Indication: NEUROBLASTOMA
     Dosage: INDUCTION CYCLE 4
     Route: 065
  9. VINCRISTINE SULFATE. [Suspect]
     Active Substance: VINCRISTINE SULFATE
     Route: 065
  10. DINUTUXIMAB [Suspect]
     Active Substance: DINUTUXIMAB
     Dosage: 2.5 ML/HR
     Route: 041
  11. CYCLOPHOSPHAMIDE. [Suspect]
     Active Substance: CYCLOPHOSPHAMIDE
     Route: 065
  12. DINUTUXIMAB [Suspect]
     Active Substance: DINUTUXIMAB
     Dosage: INDUCTION CYCLE 4
     Route: 041
  13. DOXORUBICIN HYDROCHLORIDE. [Suspect]
     Active Substance: DOXORUBICIN HYDROCHLORIDE
     Indication: NEUROBLASTOMA
     Dosage: INDUCTION CYCLE 4
     Route: 065
  14. ETOPOSIDE. [Suspect]
     Active Substance: ETOPOSIDE
     Indication: NEUROBLASTOMA
     Dosage: INDUCTION CYCLE 5
     Route: 065
  15. DINUTUXIMAB [Suspect]
     Active Substance: DINUTUXIMAB
     Dosage: INDUCTION CYCLE 5
     Route: 041
  16. VINCRISTINE SULFATE. [Suspect]
     Active Substance: VINCRISTINE SULFATE
     Indication: NEUROBLASTOMA
     Dosage: INDUCTION CYCLE 4
     Route: 065

REACTIONS (4)
  - Off label use [Unknown]
  - Pyrexia [Unknown]
  - Therapy partial responder [Unknown]
  - Hypotension [Unknown]
